FAERS Safety Report 23855448 (Version 1)
Quarter: 2024Q2

REPORT INFORMATION
  Report Type: Spontaneous
  Country: GB (occurrence: GB)
  Receive Date: 20240514
  Receipt Date: 20240514
  Transmission Date: 20240715
  Serious: Yes (Death)
  Sender: FDA-Public Use
  Company Number: GB-SA-SAC20240511000327

PATIENT
  Sex: Male

DRUGS (1)
  1. ISATUXIMAB [Suspect]
     Active Substance: ISATUXIMAB
     Indication: Plasma cell myeloma refractory
     Dosage: UNK
     Route: 041

REACTIONS (1)
  - COVID-19 [Fatal]
